FAERS Safety Report 9612476 (Version 1)
Quarter: 2013Q4

REPORT INFORMATION
  Report Type: Spontaneous
  Country: US (occurrence: US)
  Receive Date: 20131010
  Receipt Date: 20131010
  Transmission Date: 20140711
  Serious: Yes (Other)
  Sender: FDA-Public Use
  Company Number: US-ELI_LILLY_AND_COMPANY-US201310000178

PATIENT
  Age: 21 Year
  Sex: Female

DRUGS (1)
  1. CYMBALTA [Suspect]
     Dosage: 30 MG, UNKNOWN
     Route: 065
     Dates: start: 20130927, end: 20130927

REACTIONS (8)
  - Dyspnoea [Unknown]
  - Hypersensitivity [Unknown]
  - Discomfort [Unknown]
  - Hyperhidrosis [Unknown]
  - Tremor [Unknown]
  - Feeling hot [Unknown]
  - Pruritus [Unknown]
  - Urticaria [Unknown]
